FAERS Safety Report 5105373-2 (Version None)
Quarter: 2006Q3

REPORT INFORMATION
  Report Type: 
  Country: None (occurrence: None)
  Receive Date: 20060731
  Receipt Date: 20060130
  Transmission Date: 20061208
  Serious: Yes (Other)
  Sender: FDA-Public Use
  Company Number: US-JNJFOC-20051204030

PATIENT
  Age: 32 Year
  Sex: Female
  Weight: 63.5036 kg

DRUGS (1)
  1. RISPERDAL [Suspect]
     Indication: BIPOLAR DISORDER
     Dosage: 0.25 MG, 3 IN 1 DAY, ORAL
     Route: 048
     Dates: start: 20011101, end: 20040701

REACTIONS (5)
  - HYPOAESTHESIA [None]
  - LIVER DISORDER [None]
  - SEDATION [None]
  - SUICIDE ATTEMPT [None]
  - WEIGHT INCREASED [None]
